FAERS Safety Report 4425029-9 (Version None)
Quarter: 2004Q3

REPORT INFORMATION
  Report Type: 
  Country: None (occurrence: None)
  Receive Date: 20040813
  Receipt Date: 20040709
  Transmission Date: 20050211
  Serious: Yes (Life-Threatening)
  Sender: FDA-Public Use
  Company Number: 200416855GDDC

PATIENT
  Age: 88 Year
  Sex: Female

DRUGS (1)
  1. LACTULOSE [Suspect]
     Indication: CONSTIPATION
     Dosage: DOSE: UNK

REACTIONS (3)
  - ANAL STENOSIS [None]
  - COLON CANCER STAGE II [None]
  - INTESTINAL DILATATION [None]
